FAERS Safety Report 17516134 (Version 1)
Quarter: 2020Q1

REPORT INFORMATION
  Report Type: Spontaneous
  Country: US (occurrence: US)
  Receive Date: 20200227
  Receipt Date: 20200227
  Transmission Date: 20200409
  Serious: No
  Sender: FDA-Public Use
  Company Number: None

PATIENT
  Age: 47 Year
  Sex: Female
  Weight: 63.5 kg

DRUGS (6)
  1. WELLBUTRIN SR [Concomitant]
     Active Substance: BUPROPION HYDROCHLORIDE
  2. RITALIN [Concomitant]
     Active Substance: METHYLPHENIDATE HYDROCHLORIDE
  3. LEXAPRO [Concomitant]
     Active Substance: ESCITALOPRAM OXALATE
  4. SONATA [Concomitant]
     Active Substance: ZALEPLON
  5. GABAPENTIN 600MG [Suspect]
     Active Substance: GABAPENTIN
     Indication: GENERALISED ANXIETY DISORDER
     Dosage: ?          OTHER FREQUENCY:QAM;?
     Route: 048
     Dates: start: 20090315
  6. GABAPENTIN 600MG [Suspect]
     Active Substance: GABAPENTIN
     Indication: MAJOR DEPRESSION
     Route: 048
     Dates: start: 20090515

REACTIONS (6)
  - Dysphoria [None]
  - Disease recurrence [None]
  - Anxiety [None]
  - Irritability [None]
  - Affective disorder [None]
  - Product substitution issue [None]

NARRATIVE: CASE EVENT DATE: 20090410
